FAERS Safety Report 11309991 (Version 1)
Quarter: 2015Q3

REPORT INFORMATION
  Report Type: Report from Study
  Country: DE (occurrence: DE)
  Receive Date: 20150724
  Receipt Date: 20150724
  Transmission Date: 20151125
  Serious: Yes (Other)
  Sender: FDA-Public Use
  Company Number: DE-PFIZER INC-2015242908

PATIENT

DRUGS (1)
  1. ZIPRASIDONE MESILATE [Suspect]
     Active Substance: ZIPRASIDONE
     Indication: ACUTE PSYCHOSIS
     Dosage: 10 MG OR 20 MG, UNK
     Route: 030

REACTIONS (1)
  - Electrocardiogram QT shortened [Unknown]
